FAERS Safety Report 7056469-X (Version None)
Quarter: 2010Q4

REPORT INFORMATION
  Report Type: 
  Country: None (occurrence: None)
  Receive Date: 20101021
  Receipt Date: 20101012
  Transmission Date: 20110411
  Serious: Yes (Death, Other)
  Sender: FDA-Public Use
  Company Number: NL-GILEAD-2010-0032692

PATIENT
  Age: 28 Year
  Sex: Female
  Weight: 65 kg

DRUGS (14)
  1. TRUVADA [Suspect]
     Indication: HIV INFECTION
     Dates: start: 20100201
  2. LPV [Concomitant]
     Indication: HIV INFECTION
     Dates: start: 20100201
  3. ABC [Concomitant]
     Indication: HIV INFECTION
     Dates: start: 20090801, end: 20100101
  4. LAMIVUDINE (EPIVIR HBV) [Concomitant]
     Indication: HIV INFECTION
     Dates: start: 20090801, end: 20100101
  5. EFV [Concomitant]
     Indication: HIV INFECTION
     Dates: start: 20090801, end: 20100101
  6. RITONAVIR [Concomitant]
     Indication: HIV INFECTION
     Dates: start: 20100201
  7. COTRIM [Concomitant]
  8. VALACYCLOVIR [Concomitant]
  9. DEXAMETHASONE [Concomitant]
  10. GANCICLOVIR [Concomitant]
  11. PREDNISONE TAB [Concomitant]
  12. CIPROFLOXACIN [Concomitant]
  13. CEFTRIAXON [Concomitant]
  14. GENTAMICIN [Concomitant]

REACTIONS (5)
  - HEPATOSPLENOMEGALY [None]
  - HYPERBILIRUBINAEMIA [None]
  - MULTI-ORGAN FAILURE [None]
  - PANCYTOPENIA [None]
  - PYREXIA [None]
